FAERS Safety Report 10155661 (Version 1)
Quarter: 2014Q2

REPORT INFORMATION
  Report Type: Spontaneous
  Country: US (occurrence: US)
  Receive Date: 20140506
  Receipt Date: 20140506
  Transmission Date: 20141212
  Serious: Yes (Other)
  Sender: FDA-Public Use
  Company Number: US-GLAXOSMITHKLINE-A1071992A

PATIENT
  Age: 62 Year
  Sex: Female

DRUGS (1)
  1. VOTRIENT [Suspect]
     Indication: RENAL CELL CARCINOMA
     Dosage: 200MG UNKNOWN

REACTIONS (5)
  - Infected skin ulcer [Unknown]
  - Rectal ulcer [Unknown]
  - Skin ulcer [Unknown]
  - Vaginal ulceration [Unknown]
  - Genital pain [Unknown]
